FAERS Safety Report 14020290 (Version 1)
Quarter: 2017Q3

REPORT INFORMATION
  Report Type: Spontaneous
  Country: US (occurrence: US)
  Receive Date: 20170928
  Receipt Date: 20170928
  Transmission Date: 20171128
  Serious: No
  Sender: FDA-Public Use
  Company Number: US-AVEDRO-AVE-2017-0229-AE

PATIENT

DRUGS (4)
  1. PHOTREXA VISCOUS [Suspect]
     Active Substance: RIBOFLAVIN 5^-PHOSPHATE SODIUM
     Indication: PRODUCT USED FOR UNKNOWN INDICATION
     Dosage: 2 DROPS EVERY 2 MINUTES FOR 30 MINUTES DURING THE INITIAL SOAK PERIOD
     Route: 047
     Dates: start: 20170814, end: 20170814
  2. PHOTREXA VISCOUS [Suspect]
     Active Substance: RIBOFLAVIN 5^-PHOSPHATE SODIUM
     Dosage: 1 DROP EVERY 4 TO 5 MINUTES DURING THE REPEAT SOAK PERIOD
     Route: 047
     Dates: start: 20170814, end: 20170814
  3. KXL SYSTEM [Suspect]
     Active Substance: DEVICE
     Indication: PRODUCT USED FOR UNKNOWN INDICATION
     Route: 047
     Dates: start: 20170814, end: 20170814
  4. PHOTREXA VISCOUS [Suspect]
     Active Substance: RIBOFLAVIN 5^-PHOSPHATE SODIUM
     Dosage: 2 DROPS EVERY 2 MINUTES DURING THE IRRADIATION PERIOD
     Route: 047
     Dates: start: 20170814, end: 20170814

REACTIONS (3)
  - No adverse event [Unknown]
  - Inappropriate schedule of drug administration [Unknown]
  - Therapy cessation [Unknown]

NARRATIVE: CASE EVENT DATE: 20170814
